FAERS Safety Report 5033385-6 (Version None)
Quarter: 2006Q2

REPORT INFORMATION
  Report Type: 
  Country: None (occurrence: None)
  Receive Date: 20060623
  Receipt Date: 20050322
  Transmission Date: 20061013
  Serious: Yes (Hospitalization)
  Sender: FDA-Public Use
  Company Number: PHEH2005US03462

PATIENT
  Age: 76 Year
  Sex: Female

DRUGS (5)
  1. ATENOLOL [Concomitant]
  2. BUSPAR [Concomitant]
  3. ZELNORM [Suspect]
     Indication: IRRITABLE BOWEL SYNDROME
     Dosage: 6 MG, BID
     Dates: start: 20030101
  4. TRAMADOL HCL [Concomitant]
  5. LIPITOR [Concomitant]

REACTIONS (8)
  - ABDOMINAL PAIN [None]
  - BONE DISORDER [None]
  - CONSTIPATION [None]
  - DIARRHOEA [None]
  - DRUG INEFFECTIVE [None]
  - FLATULENCE [None]
  - GAIT DISTURBANCE [None]
  - HIP ARTHROPLASTY [None]
